FAERS Safety Report 6960186-1 (Version None)
Quarter: 2010Q3

REPORT INFORMATION
  Report Type: 
  Country: None (occurrence: None)
  Receive Date: 20100901
  Receipt Date: 20100827
  Transmission Date: 20110219
  Serious: Yes (Hospitalization)
  Sender: FDA-Public Use
  Company Number: US-SANOFI-AVENTIS-2010SA051479

PATIENT
  Sex: Male
  Weight: 80 kg

DRUGS (3)
  1. DOCETAXEL [Suspect]
     Indication: PROSTATE CANCER
     Route: 041
     Dates: start: 20100201, end: 20100201
  2. DOCETAXEL [Suspect]
     Route: 041
     Dates: start: 20100721, end: 20100721
  3. BLINDED THERAPY [Suspect]
     Indication: PROSTATE CANCER
     Route: 048
     Dates: start: 20100201, end: 20100810

REACTIONS (2)
  - FATIGUE [None]
  - HYPONATRAEMIA [None]
